FAERS Safety Report 26116010 (Version 2)
Quarter: 2025Q4

REPORT INFORMATION
  Report Type: Report from Study
  Country: MX (occurrence: MX)
  Receive Date: 20251203
  Receipt Date: 20251217
  Transmission Date: 20260117
  Serious: Yes (Hospitalization)
  Sender: ALEXION PHARMACEUTICALS
  Company Number: MX-AstraZeneca-CH-01003749A

PATIENT
  Age: 67 Year
  Sex: Male
  Weight: 86 kg

DRUGS (11)
  1. DURVALUMAB [Suspect]
     Active Substance: DURVALUMAB
     Indication: Hepatocellular carcinoma
     Dosage: 1500 MILLIGRAM, Q3W
     Dates: start: 20250911
  2. LACTULOSE [Concomitant]
     Active Substance: LACTULOSE
     Dosage: 15 MILLILITER, Q8H
     Route: 065
  3. FUROSEMIDE [Concomitant]
     Active Substance: FUROSEMIDE
     Indication: Abdominal distension
     Dosage: 20 MILLIGRAM
     Route: 065
  4. FUROSEMIDE [Concomitant]
     Active Substance: FUROSEMIDE
     Indication: Peripheral swelling
  5. CARVEDILOL [Concomitant]
     Active Substance: CARVEDILOL
     Dosage: 6.25 MILLILITER
     Route: 065
  6. CEFTRIAXONE [Concomitant]
     Active Substance: CEFTRIAXONE
     Dosage: 1 GRAM, QD
     Route: 065
  7. ENTEREX [Concomitant]
     Indication: Nutritional supplementation
     Dosage: UNK
     Route: 065
  8. VIVIOPTAL [Concomitant]
     Indication: Gastrointestinal disorder prophylaxis
     Dosage: UNK, QD
     Route: 065
  9. PREGABALIN [Concomitant]
     Active Substance: PREGABALIN
     Dosage: UNK, QD
     Route: 065
  10. CISPLATIN [Concomitant]
     Active Substance: CISPLATIN
     Dosage: UNK
     Route: 065
  11. MOMETASONE [Concomitant]
     Active Substance: MOMETASONE
     Dosage: 1 SPRAY PER NOSTRIL IN THE MORNING AND EVENING

REACTIONS (16)
  - Dizziness [Unknown]
  - Vertigo [Unknown]
  - Speech disorder [Unknown]
  - Gait disturbance [Unknown]
  - Nausea [Unknown]
  - Constipation [Unknown]
  - Loss of consciousness [Unknown]
  - Fluid retention [Unknown]
  - Symptom recurrence [Unknown]
  - Eating disorder [Unknown]
  - Dysgeusia [Unknown]
  - Weight decreased [Unknown]
  - Poor venous access [Unknown]
  - Loss of personal independence in daily activities [Unknown]
  - Aversion [Unknown]
  - Asthenia [Unknown]

NARRATIVE: CASE EVENT DATE: 20251101
